FAERS Safety Report 8126893-2 (Version None)
Quarter: 2012Q1

REPORT INFORMATION
  Report Type: 
  Country: None (occurrence: None)
  Receive Date: 20120210
  Receipt Date: 20120207
  Transmission Date: 20120608
  Serious: No
  Sender: FDA-Public Use
  Company Number: US-PFIZER INC-2011266883

PATIENT
  Sex: Female

DRUGS (4)
  1. LASIX [Concomitant]
     Indication: OEDEMA
     Dosage: 20 MG, AS NEEDED (PRN)
     Route: 048
     Dates: start: 20111221
  2. MAGNESIUM [Concomitant]
     Indication: CONSTIPATION
  3. SUCRALFATE [Concomitant]
     Indication: GASTROOESOPHAGEAL REFLUX DISEASE
     Dosage: UNK, AS NEEDED (6 H PRN)
     Dates: start: 20111221
  4. XALKORI [Suspect]
     Indication: NON-SMALL CELL LUNG CANCER
     Dosage: 250 MG, 2X/DAY
     Route: 048
     Dates: start: 20110921

REACTIONS (7)
  - THROAT TIGHTNESS [None]
  - VISUAL IMPAIRMENT [None]
  - CONSTIPATION [None]
  - GASTROOESOPHAGEAL REFLUX DISEASE [None]
  - ERUCTATION [None]
  - OEDEMA [None]
  - LACRIMATION INCREASED [None]
